FAERS Safety Report 23262357 (Version 2)
Quarter: 2023Q4

REPORT INFORMATION
  Report Type: Spontaneous
  Country: US (occurrence: None)
  Receive Date: 20231205
  Receipt Date: 20231209
  Transmission Date: 20240110
  Serious: Yes (Other)
  Sender: FDA-Public Use
  Company Number: US-ROCHE-3465646

PATIENT
  Age: 70 Year
  Sex: Female
  Weight: 47.67 kg

DRUGS (8)
  1. ALECENSA [Suspect]
     Active Substance: ALECTINIB HYDROCHLORIDE
     Indication: Lung neoplasm malignant
     Dosage: TAKING 4 PILLS TWICE A DAY AT 150
     Route: 048
     Dates: start: 20231102, end: 20231116
  2. ALECENSA [Suspect]
     Active Substance: ALECTINIB HYDROCHLORIDE
     Dosage: 3 TABLETS OF 150MG EACH, 2 TIMES A DAY
     Route: 048
     Dates: start: 20231116, end: 20231120
  3. PLAVIX [Concomitant]
     Active Substance: CLOPIDOGREL BISULFATE
     Dates: start: 202307
  4. ATORVASTATIN [Concomitant]
     Active Substance: ATORVASTATIN
     Dates: start: 202306
  5. METOPROLOL [Concomitant]
     Active Substance: METOPROLOL
     Indication: Blood pressure measurement
     Dates: start: 202306
  6. ASPIRIN [Concomitant]
     Active Substance: ASPIRIN
     Dates: start: 202306
  7. SINGULAIR [Concomitant]
     Active Substance: MONTELUKAST SODIUM
     Indication: Asthma
  8. SYMBICORT [Concomitant]
     Active Substance: BUDESONIDE\FORMOTEROL FUMARATE DIHYDRATE
     Indication: Asthma

REACTIONS (10)
  - Myocardial infarction [Unknown]
  - Weight increased [Unknown]
  - Pneumonia [Not Recovered/Not Resolved]
  - Loss of personal independence in daily activities [Unknown]
  - Photosensitivity reaction [Unknown]
  - Hypervolaemia [Unknown]
  - Constipation [Recovering/Resolving]
  - Thrombosis [Unknown]
  - Asthenia [Unknown]
  - Drug intolerance [Unknown]

NARRATIVE: CASE EVENT DATE: 20231124
